FAERS Safety Report 9713892 (Version 1)
Quarter: 2013Q4

REPORT INFORMATION
  Report Type: Report from Study
  Country: GB (occurrence: GB)
  Receive Date: 20131126
  Receipt Date: 20131126
  Transmission Date: 20140711
  Serious: Yes (Other)
  Sender: FDA-Public Use
  Company Number: GB-GLAXOSMITHKLINE-B0947786A

PATIENT
  Sex: 0

DRUGS (1)
  1. PAZOPANIB [Suspect]
     Indication: RENAL CELL CARCINOMA

REACTIONS (10)
  - Decreased appetite [Unknown]
  - Diarrhoea [Unknown]
  - Nausea [Unknown]
  - Fatigue [Recovered/Resolved]
  - Dyspepsia [Unknown]
  - Lethargy [Unknown]
  - Haematuria [Unknown]
  - Liver function test abnormal [Unknown]
  - Hypercalcaemia [Unknown]
  - Renal impairment [Unknown]
